APPROVED DRUG PRODUCT: OXYCODONE AND ASPIRIN
Active Ingredient: ASPIRIN; OXYCODONE HYDROCHLORIDE
Strength: 325MG;4.8355MG
Dosage Form/Route: TABLET;ORAL
Application: A090084 | Product #001
Applicant: ACTAVIS LABORATORIES FL INC
Approved: Mar 22, 2011 | RLD: No | RS: No | Type: DISCN